FAERS Safety Report 4683096-1 (Version None)
Quarter: 2005Q2

REPORT INFORMATION
  Report Type: 
  Country: None (occurrence: None)
  Receive Date: 20050602
  Receipt Date: 20050323
  Transmission Date: 20051028
  Serious: No
  Sender: FDA-Public Use
  Company Number: USA050394303

PATIENT
  Sex: Female

DRUGS (3)
  1. CYMBALTA [Suspect]
     Dosage: 60 MG
  2. ST JOHN'S WORT [Concomitant]
  3. OTHER HERBAL REMEDIES [Concomitant]

REACTIONS (2)
  - ANXIETY [None]
  - HYPERVENTILATION [None]
